FAERS Safety Report 7179356-5 (Version None)
Quarter: 2010Q4

REPORT INFORMATION
  Report Type: 
  Country: None (occurrence: None)
  Receive Date: 20101221
  Receipt Date: 20101208
  Transmission Date: 20110411
  Serious: Yes (Other)
  Sender: FDA-Public Use
  Company Number: PHHY2010JP76554

PATIENT

DRUGS (9)
  1. RASILEZ [Suspect]
     Indication: HYPERTENSION
     Dosage: 150 MG, UNK
     Route: 048
     Dates: start: 20101027
  2. DIOVAN [Concomitant]
     Dosage: 80 MG, UNK
     Route: 048
     Dates: start: 20090402, end: 20101026
  3. ALDACTONE [Concomitant]
     Dosage: 25 MG, UNK
     Dates: start: 20080911
  4. AMARYL [Concomitant]
     Dosage: 02 MG, UNK
     Route: 048
     Dates: start: 20081128
  5. TORSEMIDE [Concomitant]
     Dosage: 08 MG, UNK
     Dates: start: 20080912
  6. WARFARIN [Concomitant]
     Dosage: 02 MG, UNK
     Route: 048
     Dates: start: 20081128
  7. INDERAL [Concomitant]
     Dosage: UNK
     Route: 048
     Dates: start: 20090402
  8. RHYTHMY [Concomitant]
     Dosage: UNK
     Route: 048
     Dates: start: 20090917
  9. GRIMAC [Concomitant]
     Dosage: 2000 MG, UNK
     Dates: start: 20090402

REACTIONS (2)
  - GAIT DISTURBANCE [None]
  - PAIN IN EXTREMITY [None]
